FAERS Safety Report 20690815 (Version 2)
Quarter: 2022Q2

REPORT INFORMATION
  Report Type: Spontaneous
  Country: ES (occurrence: ES)
  Receive Date: 20220408
  Receipt Date: 20220606
  Transmission Date: 20220721
  Serious: Yes (Other)
  Sender: FDA-Public Use
  Company Number: ES-PFIZER INC-202200321970

PATIENT
  Sex: Female

DRUGS (4)
  1. LETROZOLE [Suspect]
     Active Substance: LETROZOLE
     Indication: Breast cancer metastatic
     Dosage: 2.5 MILLIGRAM, QD (EVERY 24 HOURS)
     Route: 048
     Dates: start: 20200410
  2. PALBOCICLIB [Suspect]
     Active Substance: PALBOCICLIB
     Indication: Product used for unknown indication
     Dosage: 125 MILLIGRAM, QD, (125 MG/24 HOURS), 21/28D
     Route: 048
     Dates: start: 20200410
  3. OMEPRAZOLE [Concomitant]
     Active Substance: OMEPRAZOLE
     Dosage: 20 MILLIGRAM, QD
  4. LEVOTHYROXINE SODIUM [Concomitant]
     Active Substance: LEVOTHYROXINE SODIUM
     Dosage: 25 MICROGRAM, QD, 25 UG, 1X/DAY

REACTIONS (3)
  - Neutropenia [Unknown]
  - Carbohydrate antigen 15-3 increased [Recovering/Resolving]
  - Tumour marker abnormal [Unknown]

NARRATIVE: CASE EVENT DATE: 20200501
